FAERS Safety Report 6465784-X (Version None)
Quarter: 2009Q4

REPORT INFORMATION
  Report Type: 
  Country: None (occurrence: None)
  Receive Date: 20091124
  Receipt Date: 20091118
  Transmission Date: 20100525
  Serious: Yes (Hospitalization)
  Sender: FDA-Public Use
  Company Number: 2009SP036989

PATIENT
  Sex: Male

DRUGS (2)
  1. NITRO-DUR [Suspect]
     Indication: DRUG USE FOR UNKNOWN INDICATION
  2. IMDUR [Concomitant]

REACTIONS (1)
  - CHEST PAIN [None]
